FAERS Safety Report 5071024-9 (Version None)
Quarter: 2006Q3

REPORT INFORMATION
  Report Type: 
  Country: None (occurrence: None)
  Receive Date: 20060802
  Receipt Date: 20060802
  Transmission Date: 20061208
  Serious: Yes (Death, Life-Threatening)
  Sender: FDA-Public Use
  Company Number: None

PATIENT
  Age: 55 Year
  Sex: Female

DRUGS (1)
  1. DARBEPOETIN ALFA,    AMGEN [Suspect]
     Indication: ANAEMIA OF MALIGNANT DISEASE
     Dosage: 500 MCG
     Dates: start: 20060328

REACTIONS (2)
  - PHLEBITIS [None]
  - PULMONARY EMBOLISM [None]
